FAERS Safety Report 7580146-X (Version None)
Quarter: 2011Q2

REPORT INFORMATION
  Report Type: 
  Country: None (occurrence: None)
  Receive Date: 20110629
  Receipt Date: 20110607
  Transmission Date: 20111010
  Serious: Yes (Hospitalization, Other)
  Sender: FDA-Public Use
  Company Number: US-BAYER-200935814NA

PATIENT
  Age: 34 Year
  Sex: Female
  Weight: 68.027 kg

DRUGS (6)
  1. DOXYCYCLINE HYCLATE [Concomitant]
     Dosage: 100 MG, UNK
  2. YAZ [Suspect]
     Indication: ACNE
     Dosage: 1 DF (DAILY DOSE), QD, ORAL
     Route: 048
  3. YASMIN [Suspect]
     Indication: PRODUCT USED FOR UNKNOWN INDICATION
  4. CHERATUSSIN AC [Concomitant]
  5. EFFEXOR XR [Concomitant]
     Dosage: 75 MG, UNK
     Route: 048
  6. YAZ [Suspect]
     Indication: PREMENSTRUAL SYNDROME

REACTIONS (4)
  - PAIN [None]
  - FATIGUE [None]
  - PULMONARY EMBOLISM [None]
  - DYSPNOEA [None]
